FAERS Safety Report 11593129 (Version 1)
Quarter: 2015Q4

REPORT INFORMATION
  Report Type: Spontaneous
  Country: US (occurrence: None)
  Receive Date: 20151002
  Receipt Date: 20151002
  Transmission Date: 20160304
  Serious: Yes (Disabling, Other)
  Sender: FDA-Public Use
  Company Number: None

PATIENT
  Age: 61 Year
  Sex: Female
  Weight: 72.58 kg

DRUGS (10)
  1. CYCLOBENZAPRINE [Concomitant]
     Active Substance: CYCLOBENZAPRINE
  2. AMLODIPNE BESYLATE [Concomitant]
  3. LATANOPROST. [Concomitant]
     Active Substance: LATANOPROST
  4. CALCIUM [Concomitant]
     Active Substance: CALCIUM
  5. MAGNESIUM [Concomitant]
     Active Substance: MAGNESIUM
  6. PROAIR HFA [Concomitant]
     Active Substance: ALBUTEROL SULFATE
  7. BABY ASPIRIN [Concomitant]
     Active Substance: ASPIRIN
  8. CIPROFLOXACIN. [Suspect]
     Active Substance: CIPROFLOXACIN
     Indication: PROPHYLAXIS
  9. TIMOLOL. [Concomitant]
     Active Substance: TIMOLOL
  10. IBUPROFEN. [Concomitant]
     Active Substance: IBUPROFEN

REACTIONS (5)
  - Spinal column stenosis [None]
  - Burning sensation [None]
  - Paraesthesia [None]
  - Muscular weakness [None]
  - Peripheral swelling [None]

NARRATIVE: CASE EVENT DATE: 20130516
